FAERS Safety Report 24083416 (Version 3)
Quarter: 2025Q1

REPORT INFORMATION
  Report Type: Spontaneous
  Country: BE (occurrence: BE)
  Receive Date: 20240712
  Receipt Date: 20250311
  Transmission Date: 20250409
  Serious: Yes (Death, Life-Threatening, Hospitalization, Other)
  Sender: AUROBINDO
  Company Number: BE-EMA-20170929-KSEVHUMANWT-131127921

PATIENT
  Age: 51 Year
  Sex: Male
  Weight: 80 kg

DRUGS (12)
  1. MEROPENEM [Interacting]
     Active Substance: MEROPENEM
     Indication: Sepsis
     Dosage: 3 GRAM, ONCE A DAY
     Route: 042
  2. MEROPENEM [Interacting]
     Active Substance: MEROPENEM
     Indication: Escherichia infection
     Dosage: 1 GRAM, 3 TIMES A DAY
     Route: 065
  3. COLISTIN [Interacting]
     Active Substance: COLISTIN
     Indication: Escherichia infection
     Dosage: 9 MEGA-INTERNATIONAL UNIT, ONCE A DAY
     Route: 042
  4. COLISTIN [Interacting]
     Active Substance: COLISTIN
     Dosage: 0.13 DOSAGE FORM, 3 TIMES A DAY
     Route: 065
  5. COLISTIN [Interacting]
     Active Substance: COLISTIN
     Route: 065
  6. TIGECYCLINE [Concomitant]
     Active Substance: TIGECYCLINE
     Indication: Sepsis
     Route: 065
  7. TIGECYCLINE [Concomitant]
     Active Substance: TIGECYCLINE
     Dosage: 50 MILLIGRAM, 3 TIMES A DAY
     Route: 065
  8. TIGECYCLINE [Concomitant]
     Active Substance: TIGECYCLINE
     Indication: Product used for unknown indication
     Dosage: 100 MILLIGRAM, ONCE A DAY
     Route: 042
  9. VANCOMYCIN [Concomitant]
     Active Substance: VANCOMYCIN
     Indication: Sepsis
     Route: 042
  10. VANCOMYCIN [Concomitant]
     Active Substance: VANCOMYCIN
     Indication: Escherichia infection
     Route: 042
  11. CIPROFLOXACIN [Concomitant]
     Active Substance: CIPROFLOXACIN
     Indication: Escherichia infection
     Route: 065
  12. CLINDAMYCIN [Concomitant]
     Active Substance: CLINDAMYCIN
     Indication: Escherichia infection
     Route: 065

REACTIONS (15)
  - Seizure [Fatal]
  - Apnoea [Fatal]
  - Pneumonia [Fatal]
  - Metabolic disorder [Fatal]
  - Respiratory failure [Fatal]
  - Fungal sepsis [Fatal]
  - Shock [Fatal]
  - Cardiovascular disorder [Fatal]
  - Respiratory muscle weakness [Fatal]
  - Neurotoxicity [Fatal]
  - Septic shock [Fatal]
  - Electrolyte imbalance [Unknown]
  - Drug level increased [Unknown]
  - Postoperative wound infection [Unknown]
  - Drug interaction [Unknown]
